FAERS Safety Report 22387206 (Version 3)
Quarter: 2025Q1

REPORT INFORMATION
  Report Type: Report from Study
  Country: JP (occurrence: JP)
  Receive Date: 20230531
  Receipt Date: 20250325
  Transmission Date: 20250408
  Serious: Yes (Hospitalization)
  Sender: ROCHE
  Company Number: JP-CHUGAI-2023016789

PATIENT
  Age: 36 Year
  Sex: Male
  Weight: 86.0 kg

DRUGS (1)
  1. HEMLIBRA [Suspect]
     Active Substance: EMICIZUMAB-KXWH
     Indication: Haemophilia A without inhibitors
     Dosage: 480 MILLIGRAM, ONCE/4WEEKS
     Route: 058
     Dates: start: 20190701

REACTIONS (3)
  - Diverticulum intestinal [Recovered/Resolved]
  - Gastrointestinal haemorrhage [Recovered/Resolved]
  - Therapeutic response decreased [Unknown]

NARRATIVE: CASE EVENT DATE: 20230501
